FAERS Safety Report 20835308 (Version 1)
Quarter: 2022Q2

REPORT INFORMATION
  Report Type: Spontaneous
  Country: ML (occurrence: ML)
  Receive Date: 20220516
  Receipt Date: 20220516
  Transmission Date: 20220721
  Serious: Yes (Hospitalization, Other)
  Sender: FDA-Public Use
  Company Number: ML-BAYER-2021A218348

PATIENT
  Age: 38 Year
  Sex: Female

DRUGS (1)
  1. LEVONORGESTREL [Suspect]
     Active Substance: LEVONORGESTREL
     Indication: Contraception
     Dosage: LEFT ARM
     Route: 059
     Dates: start: 20161027, end: 20211007

REACTIONS (5)
  - Ruptured ectopic pregnancy [Unknown]
  - Genital haemorrhage [Unknown]
  - Abdominal pain [Unknown]
  - Pregnancy with implant contraceptive [Unknown]
  - Drug ineffective [Unknown]
